FAERS Safety Report 24966931 (Version 3)
Quarter: 2025Q1

REPORT INFORMATION
  Report Type: Spontaneous
  Country: BR (occurrence: BR)
  Receive Date: 20250213
  Receipt Date: 20250226
  Transmission Date: 20250409
  Serious: Yes (Other)
  Sender: PFIZER
  Company Number: BR-PFIZER INC-202500032445

PATIENT
  Age: 6 Year
  Sex: Male

DRUGS (1)
  1. SOMATROGON [Suspect]
     Active Substance: SOMATROGON
     Indication: Growth hormone deficiency
     Dosage: 13 MG, WEEKLY
     Dates: start: 20250110, end: 20250210

REACTIONS (1)
  - Lipodystrophy acquired [Unknown]

NARRATIVE: CASE EVENT DATE: 20250210
